FAERS Safety Report 4399399-4 (Version None)
Quarter: 2004Q3

REPORT INFORMATION
  Report Type: 
  Country: None (occurrence: None)
  Receive Date: 20040712
  Receipt Date: 20040629
  Transmission Date: 20050211
  Serious: Yes (Hospitalization)
  Sender: FDA-Public Use
  Company Number: US-JNJFOC-20040700333

PATIENT
  Age: 81 Year
  Sex: Female

DRUGS (9)
  1. INFLIXIMAB (INFLIXIMAB, RECOMBINANT) LYOPHILIZED POWDER [Suspect]
     Indication: RHEUMATOID ARTHRITIS
     Dosage: INTRAVENOUS
     Route: 042
     Dates: start: 20010427, end: 20010801
  2. LOTREL (LOTREL) [Concomitant]
  3. METHOTREXATE [Concomitant]
  4. FOLIC ACID [Concomitant]
  5. CALCIUM (CALCIUM) [Concomitant]
  6. ZOCOR [Concomitant]
  7. CO24 (ALL OTHER THERAPEUTIC PRODUCTS) [Concomitant]
  8. PAXIL [Concomitant]
  9. GLUCOSAMINE/CHONDROITIN (GLUCOSAMINE W/CHONDROITIN) [Concomitant]

REACTIONS (2)
  - ASTHMA [None]
  - CONDITION AGGRAVATED [None]
